FAERS Safety Report 6432277-5 (Version None)
Quarter: 2009Q4

REPORT INFORMATION
  Report Type: 
  Country: None (occurrence: None)
  Receive Date: 20091109
  Receipt Date: 20091026
  Transmission Date: 20100525
  Serious: Yes (Hospitalization)
  Sender: FDA-Public Use
  Company Number: PHEH2009US14653

PATIENT
  Sex: Female
  Weight: 55.329 kg

DRUGS (12)
  1. RECLAST [Suspect]
     Indication: OSTEOPOROSIS POSTMENOPAUSAL
     Dosage: 5 MG, ONCE/SINGLE
     Dates: start: 20090908, end: 20090908
  2. METHOTREXATE [Concomitant]
     Dosage: UNK, UNK
  3. FOLIC ACID [Concomitant]
     Dosage: UNK, UNK
  4. BENICAR [Concomitant]
     Dosage: UNK, UNK
  5. HYDROCHLOROTHIAZIDE [Concomitant]
     Dosage: UNK, UNK
  6. ASPIRIN [Concomitant]
     Dosage: UNK, UNK
  7. FLOVENT [Concomitant]
     Dosage: UNK, UNK
  8. DILTIAZEM [Concomitant]
     Dosage: UNK, UNK
  9. SPIRIVA [Concomitant]
     Dosage: UNK, UNK
  10. CALCIUM WITH VITAMIN D [Concomitant]
     Dosage: UNK, UNK
  11. CENTRUM [Concomitant]
     Dosage: UNK, UNK
  12. IRON SUPPLEMENTS [Concomitant]
     Dosage: UNK, UNK

REACTIONS (1)
  - INTESTINAL OBSTRUCTION [None]
